FAERS Safety Report 22141108 (Version 1)
Quarter: 2023Q1

REPORT INFORMATION
  Report Type: Spontaneous
  Country: US (occurrence: None)
  Receive Date: 20230324
  Receipt Date: 20230324
  Transmission Date: 20230417
  Serious: Yes (Other)
  Sender: FDA-Public Use
  Company Number: None

PATIENT
  Age: 20 Year
  Sex: Male
  Weight: 99.3 kg

DRUGS (1)
  1. CIPROFLOXACIN [Suspect]
     Active Substance: CIPROFLOXACIN
     Indication: Prostatitis
     Dates: start: 20230313, end: 20230314

REACTIONS (6)
  - Tachycardia [None]
  - Chest pain [None]
  - Memory impairment [None]
  - Paraesthesia [None]
  - Arthralgia [None]
  - Weight decreased [None]

NARRATIVE: CASE EVENT DATE: 20230316
